FAERS Safety Report 6534166-4 (Version None)
Quarter: 2009Q4

REPORT INFORMATION
  Report Type: 
  Country: None (occurrence: None)
  Receive Date: 20091214
  Receipt Date: 20090512
  Transmission Date: 20100525
  Serious: Yes (Other)
  Sender: FDA-Public Use
  Company Number: 414732

PATIENT
  Age: 47 Year
  Sex: Male
  Weight: 86.2 kg

DRUGS (5)
  1. PEGASYS [Suspect]
     Indication: HEPATITIS
     Dosage: 180 UG 1 PER WEEK SUBCUTANEOUS
     Route: 058
     Dates: start: 20050805, end: 20060519
  2. COPEGUS [Suspect]
     Indication: HEPATITIS C
     Dosage: 1000 MG DAILY ORAL
     Route: 048
     Dates: start: 20050805
  3. NORCO [Concomitant]
  4. DILANTIN [Concomitant]
  5. SOMA [Concomitant]

REACTIONS (9)
  - ABNORMAL DREAMS [None]
  - DISTURBANCE IN ATTENTION [None]
  - GRAND MAL CONVULSION [None]
  - HALLUCINATION, AUDITORY [None]
  - HALLUCINATION, VISUAL [None]
  - MEMORY IMPAIRMENT [None]
  - RESPIRATORY DISORDER [None]
  - TREATMENT FAILURE [None]
  - WEIGHT DECREASED [None]
